FAERS Safety Report 7327103-6 (Version None)
Quarter: 2011Q1

REPORT INFORMATION
  Report Type: 
  Country: None (occurrence: None)
  Receive Date: 20110302
  Receipt Date: 20110221
  Transmission Date: 20110831
  Serious: Yes (Hospitalization)
  Sender: FDA-Public Use
  Company Number: US-ASTRAZENECA-2011SE10280

PATIENT
  Age: 82 Year
  Sex: Female

DRUGS (2)
  1. NEXIUM [Suspect]
     Route: 048
  2. PRILOSEC [Suspect]
     Route: 048
     Dates: end: 20101201

REACTIONS (2)
  - ARTERIAL OCCLUSIVE DISEASE [None]
  - DRUG INEFFECTIVE [None]
